FAERS Safety Report 16079835 (Version 1)
Quarter: 2019Q1

REPORT INFORMATION
  Report Type: Spontaneous
  Country: CA (occurrence: CA)
  Receive Date: 20190315
  Receipt Date: 20190315
  Transmission Date: 20190418
  Serious: Yes (Other)
  Sender: FDA-Public Use
  Company Number: CA-SAMSUNG BIOEPIS-SB-2019-06160

PATIENT
  Age: 51 Year
  Sex: Female

DRUGS (6)
  1. INFLIXIMAB [Suspect]
     Active Substance: INFLIXIMAB
     Indication: CROHN^S DISEASE
     Route: 042
  2. INFLIXIMAB [Suspect]
     Active Substance: INFLIXIMAB
     Dosage: UNKNOWN
     Route: 042
  3. ERGOCALCIFEROL. [Concomitant]
     Active Substance: ERGOCALCIFEROL
     Indication: PRODUCT USED FOR UNKNOWN INDICATION
     Dosage: UNKNOWN
     Route: 065
  4. IMURAN [Concomitant]
     Active Substance: AZATHIOPRINE
     Indication: PRODUCT USED FOR UNKNOWN INDICATION
     Route: 048
  5. HUMIRA [Suspect]
     Active Substance: ADALIMUMAB
     Indication: CROHN^S DISEASE
     Dosage: UNKNOWN
     Route: 058
  6. VITAMIN B12 [Concomitant]
     Active Substance: CYANOCOBALAMIN
     Indication: PRODUCT USED FOR UNKNOWN INDICATION
     Dosage: UNKNOWN
     Route: 065

REACTIONS (29)
  - Scoliosis [Unknown]
  - Bowel movement irregularity [Unknown]
  - Diarrhoea [Unknown]
  - Infection [Unknown]
  - Proctalgia [Unknown]
  - Discharge [Unknown]
  - Exostosis [Unknown]
  - Facet joint syndrome [Unknown]
  - Joint swelling [Unknown]
  - Balance disorder [Unknown]
  - Pain [Unknown]
  - Vertigo [Unknown]
  - Anorectal stenosis [Unknown]
  - Abdominal discomfort [Unknown]
  - Gait disturbance [Unknown]
  - Abdominal pain [Unknown]
  - Arthralgia [Unknown]
  - Back pain [Unknown]
  - Drug level below therapeutic [Unknown]
  - Gastrointestinal wall thickening [Unknown]
  - Crohn^s disease [Unknown]
  - Haematochezia [Unknown]
  - Anorectal disorder [Unknown]
  - Constipation [Unknown]
  - Drug level decreased [Unknown]
  - Photosensitivity reaction [Unknown]
  - Tenderness [Unknown]
  - Anal fistula [Unknown]
  - Vision blurred [Unknown]
